FAERS Safety Report 6788931-9 (Version None)
Quarter: 2010Q2

REPORT INFORMATION
  Report Type: 
  Country: None (occurrence: None)
  Receive Date: 20100623
  Receipt Date: 20080616
  Transmission Date: 20101027
  Serious: Yes (Other)
  Sender: FDA-Public Use
  Company Number: US-PFIZER INC-2008047365

PATIENT
  Sex: Female
  Weight: 109.8 kg

DRUGS (6)
  1. GEODON [Suspect]
     Indication: MANIA
  2. GEODON [Suspect]
     Indication: SCHIZOAFFECTIVE DISORDER
  3. IBUPROFEN [Concomitant]
  4. BENZTROPINE MESYLATE [Concomitant]
  5. LEXAPRO [Concomitant]
  6. CLONAZEPAM [Concomitant]

REACTIONS (2)
  - DRUG INEFFECTIVE [None]
  - MANIA [None]
